FAERS Safety Report 6149224-6 (Version None)
Quarter: 2009Q2

REPORT INFORMATION
  Report Type: 
  Country: None (occurrence: None)
  Receive Date: 20090409
  Receipt Date: 20090331
  Transmission Date: 20091009
  Serious: No
  Sender: FDA-Public Use
  Company Number: PHHY2009SG12660

PATIENT
  Age: 68 Year
  Sex: Female

DRUGS (3)
  1. ACLASTA [Suspect]
     Indication: OSTEOPOROSIS
     Dosage: 5 MG
     Dates: start: 20090325, end: 20090325
  2. CALCITRIOL [Concomitant]
     Dosage: 50,000 IU ONCE WEEKLY
  3. CALCIUM CARBONATE [Concomitant]
     Dosage: 1250 MG

REACTIONS (1)
  - HYPOCALCAEMIA [None]
